FAERS Safety Report 5088885-X (Version None)
Quarter: 2006Q3

REPORT INFORMATION
  Report Type: 
  Country: None (occurrence: None)
  Receive Date: 20060825
  Receipt Date: 20060818
  Transmission Date: 20061208
  Serious: Yes (Hospitalization, Disabling)
  Sender: FDA-Public Use
  Company Number: US-MERCK-0608USA04222

PATIENT
  Age: 51 Year
  Sex: Female

DRUGS (1)
  1. HYZAAR [Suspect]
     Indication: BLOOD PRESSURE
     Route: 048
     Dates: start: 20060605, end: 20060801

REACTIONS (9)
  - ASTHENIA [None]
  - DEPRESSION [None]
  - DYSKINESIA [None]
  - FATIGUE [None]
  - HYPOAESTHESIA [None]
  - IMPAIRED SELF-CARE [None]
  - PARAESTHESIA [None]
  - SPEECH DISORDER [None]
  - SUICIDAL IDEATION [None]
